FAERS Safety Report 5859625-9 (Version None)
Quarter: 2008Q3

REPORT INFORMATION
  Report Type: 
  Country: None (occurrence: None)
  Receive Date: 20080825
  Receipt Date: 20080811
  Transmission Date: 20090109
  Serious: No
  Sender: FDA-Public Use
  Company Number: SPI200800412

PATIENT
  Age: 37 Year
  Sex: Female
  Weight: 77.1 kg

DRUGS (6)
  1. AMITIZA [Suspect]
     Indication: IRRITABLE BOWEL SYNDROME
     Dosage: 8 MCG, BID, ORAL
     Route: 048
     Dates: start: 20080809, end: 20080810
  2. LYRICA [Concomitant]
  3. LEVOTHYROXINE SODIUM [Concomitant]
  4. IMITREX [Concomitant]
  5. RELPAX [Concomitant]
  6. FENOPROFEN (FENOPROFEN) [Concomitant]

REACTIONS (6)
  - ANXIETY [None]
  - CHEST DISCOMFORT [None]
  - CHEST PAIN [None]
  - HEADACHE [None]
  - INSOMNIA [None]
  - PALPITATIONS [None]
